FAERS Safety Report 7311149-8 (Version None)
Quarter: 2011Q1

REPORT INFORMATION
  Report Type: 
  Country: None (occurrence: None)
  Receive Date: 20110224
  Receipt Date: 20110216
  Transmission Date: 20110831
  Serious: Yes (Other)
  Sender: FDA-Public Use
  Company Number: TR-ROCHE-760756

PATIENT
  Sex: Female
  Weight: 65 kg

DRUGS (4)
  1. XELODA [Suspect]
     Route: 048
     Dates: start: 20100917
  2. GAVISCON [Concomitant]
     Route: 048
     Dates: start: 20100214
  3. LANSOR [Concomitant]
     Route: 048
     Dates: start: 20100214
  4. HERCEPTIN [Concomitant]
     Route: 042
     Dates: start: 20100917

REACTIONS (5)
  - ILL-DEFINED DISORDER [None]
  - ARTHRALGIA [None]
  - ABDOMINAL PAIN UPPER [None]
  - DIARRHOEA [None]
  - JOINT RANGE OF MOTION DECREASED [None]
